FAERS Safety Report 20187011 (Version 1)
Quarter: 2021Q4

REPORT INFORMATION
  Report Type: Spontaneous
  Country: US (occurrence: None)
  Receive Date: 20211214
  Receipt Date: 20211214
  Transmission Date: 20220303
  Serious: Yes (Death)
  Sender: FDA-Public Use
  Company Number: None

PATIENT
  Sex: Male

DRUGS (24)
  1. EPOGEN [Suspect]
     Active Substance: ERYTHROPOIETIN
     Indication: Hypogammaglobulinaemia
     Dates: start: 20211127
  2. AFRIN SPR [Concomitant]
  3. ALBUTEROL TAB [Concomitant]
  4. CHLORORQUINE POW THOSPHAT [Concomitant]
  5. CLONIDINE POW [Concomitant]
  6. DYMISTA SPR [Concomitant]
  7. EPOGEN [Concomitant]
  8. HALDOL INJ [Concomitant]
  9. KLONOPIN [Concomitant]
  10. LORAZEPAM [Concomitant]
  11. MORPHINE SUL [Concomitant]
  12. PREDNISONE TAB [Concomitant]
  13. REGLAN TAB [Concomitant]
  14. REMODULIN INJ [Concomitant]
  15. RISPERIDONE [Concomitant]
  16. SENOKOT TAB [Concomitant]
  17. SERTRALINE TAB [Concomitant]
  18. SPIRIVA HANDIHALER [Concomitant]
  19. SPIRONOLACT TAB [Concomitant]
  20. SYMBICORT AER [Concomitant]
  21. TORSEMIDE TAB [Concomitant]
  22. TPN ELECTROL INJ [Concomitant]
  23. TYLENOL TAB [Concomitant]
  24. ZOFRAN TAB [Concomitant]

REACTIONS (1)
  - Death [None]
